FAERS Safety Report 4368183-X (Version None)
Quarter: 2004Q2

REPORT INFORMATION
  Report Type: 
  Country: None (occurrence: None)
  Receive Date: 20040527
  Receipt Date: 20040311
  Transmission Date: 20050107
  Serious: No
  Sender: FDA-Public Use
  Company Number: 205253

PATIENT
  Sex: Female

DRUGS (2)
  1. RAPTIVA [Suspect]
     Indication: PSORIASIS
     Dosage: UNK, 1/WEEK, SUBCUTANEOUS
     Route: 058
  2. CLOBETASOL OINTMENT (CLOBETASOL PROPIONATE) [Concomitant]

REACTIONS (1)
  - PLATELET COUNT DECREASED [None]
